FAERS Safety Report 7659764-6 (Version None)
Quarter: 2011Q3

REPORT INFORMATION
  Report Type: 
  Country: None (occurrence: None)
  Receive Date: 20110805
  Receipt Date: 20101110
  Transmission Date: 20111222
  Serious: No
  Sender: FDA-Public Use
  Company Number: US-ABBOTT-10P-163-0685322-00

PATIENT
  Sex: Male
  Weight: 81.72 kg

DRUGS (6)
  1. DEPAKOTE ER [Suspect]
     Indication: BIPOLAR I DISORDER
     Dates: start: 20070601, end: 20101104
  2. EFFEXOR XR [Concomitant]
     Indication: DEPRESSION
     Dosage: 300 MG DAILY DOSE
  3. SEROQUEL [Concomitant]
     Indication: DEPRESSION
     Dosage: 200-400
  4. DEPAKOTE ER [Suspect]
     Dates: start: 20101108
  5. TRAZODONE HCL [Concomitant]
     Indication: INSOMNIA
  6. XANAX [Concomitant]
     Indication: ANXIETY
     Dosage: PRN

REACTIONS (11)
  - FEELING ABNORMAL [None]
  - HANGOVER [None]
  - VOMITING [None]
  - TREMOR [None]
  - RETCHING [None]
  - GASTROINTESTINAL DISORDER [None]
  - ALOPECIA [None]
  - CHILLS [None]
  - MALAISE [None]
  - HEADACHE [None]
  - MUSCLE SPASMS [None]
